FAERS Safety Report 8965142 (Version 1)
Quarter: 2012Q4

REPORT INFORMATION
  Report Type: 
  Country: SA (occurrence: SA)
  Receive Date: 20121213
  Receipt Date: 20121213
  Transmission Date: 20130627
  Serious: Yes (Other)
  Sender: FDA-Public Use
  Company Number: SA-JNJFOC-20121204660

PATIENT

DRUGS (5)
  1. REOPRO [Suspect]
     Indication: PERCUTANEOUS CORONARY INTERVENTION
     Dosage: bolus
     Route: 042
  2. REOPRO [Suspect]
     Indication: PERCUTANEOUS CORONARY INTERVENTION
     Dosage: over 12 hours
     Route: 042
  3. HEPARIN [Concomitant]
     Indication: PROPHYLAXIS
     Dosage: 5000 units
     Route: 065
  4. ASPIRIN [Concomitant]
     Indication: PROPHYLAXIS
     Route: 065
  5. PLAVIX [Concomitant]
     Indication: PROPHYLAXIS
     Route: 065

REACTIONS (1)
  - Coronary revascularisation [Unknown]
